FAERS Safety Report 5640593-X (Version None)
Quarter: 2008Q1

REPORT INFORMATION
  Report Type: 
  Country: None (occurrence: None)
  Receive Date: 20080227
  Receipt Date: 20080218
  Transmission Date: 20080703
  Serious: Yes (Other)
  Sender: FDA-Public Use
  Company Number: PHRM2008FR00885

PATIENT
  Age: 8 Year
  Sex: Male

DRUGS (1)
  1. RITALIN [Suspect]
     Indication: ATTENTION DEFICIT/HYPERACTIVITY DISORDER
     Route: 048
     Dates: start: 20071001, end: 20080115

REACTIONS (5)
  - ACCESSORY CARDIAC PATHWAY [None]
  - ELECTROCARDIOGRAM DELTA WAVES ABNORMAL [None]
  - HEADACHE [None]
  - TACHYCARDIA [None]
  - WOLFF-PARKINSON-WHITE SYNDROME [None]
